FAERS Safety Report 10355280 (Version 1)
Quarter: 2014Q3

REPORT INFORMATION
  Report Type: Spontaneous
  Country: US (occurrence: US)
  Receive Date: 20140731
  Receipt Date: 20140731
  Transmission Date: 20150326
  Serious: Yes (Other)
  Sender: FDA-Public Use
  Company Number: US-TEVA-497549USA

PATIENT
  Sex: Male

DRUGS (1)
  1. COPAXONE [Suspect]
     Active Substance: GLATIRAMER ACETATE
     Indication: MULTIPLE SCLEROSIS
     Dates: start: 20140604

REACTIONS (9)
  - Multiple sclerosis relapse [Unknown]
  - Adverse event [Unknown]
  - Disturbance in attention [Unknown]
  - Feeling abnormal [Unknown]
  - Anxiety [Unknown]
  - Injection site mass [Unknown]
  - Dysgeusia [Unknown]
  - Movement disorder [Unknown]
  - Asthenopia [Unknown]
